FAERS Safety Report 10403415 (Version 1)
Quarter: 2014Q3

REPORT INFORMATION
  Report Type: Spontaneous
  Country: US (occurrence: None)
  Receive Date: 20140821
  Receipt Date: 20140821
  Transmission Date: 20150326
  Serious: Yes (Disabling)
  Sender: FDA-Public Use
  Company Number: None

PATIENT
  Age: 75 Year
  Sex: Female
  Weight: 148 kg

DRUGS (5)
  1. PROLIA [Suspect]
     Active Substance: DENOSUMAB
     Indication: BONE DISORDER
     Dosage: 60 MIL SUB Q  INJECTION
     Route: 030
     Dates: start: 20140226, end: 20140226
  2. METOPROLOL [Concomitant]
     Active Substance: METOPROLOL
  3. NIACIN. [Concomitant]
     Active Substance: NIACIN
  4. PRILOSEC [Concomitant]
     Active Substance: OMEPRAZOLE MAGNESIUM
  5. CALCIUM [Concomitant]
     Active Substance: CALCIUM

REACTIONS (6)
  - Back pain [None]
  - Pain in jaw [None]
  - Pain in extremity [None]
  - Muscle spasms [None]
  - Quality of life decreased [None]
  - Activities of daily living impaired [None]

NARRATIVE: CASE EVENT DATE: 20140309
